FAERS Safety Report 15658598 (Version 4)
Quarter: 2018Q4

REPORT INFORMATION
  Report Type: Spontaneous
  Country: BR (occurrence: BR)
  Receive Date: 20181126
  Receipt Date: 20181227
  Transmission Date: 20190205
  Serious: Yes (Hospitalization, Other)
  Sender: FDA-Public Use
  Company Number: BR-BIOGEN-2018BI00663018

PATIENT
  Age: 47 Year
  Sex: Female

DRUGS (1)
  1. TECFIDERA [Suspect]
     Active Substance: DIMETHYL FUMARATE
     Indication: MULTIPLE SCLEROSIS
     Route: 048
     Dates: start: 20180920

REACTIONS (5)
  - Urinary tract infection [Not Recovered/Not Resolved]
  - Urinary retention [Not Recovered/Not Resolved]
  - Seizure [Unknown]
  - Immune reconstitution inflammatory syndrome [Recovered/Resolved with Sequelae]
  - Constipation [Not Recovered/Not Resolved]

NARRATIVE: CASE EVENT DATE: 20180929
